FAERS Safety Report 24437795 (Version 2)
Quarter: 2024Q4

REPORT INFORMATION
  Report Type: Report from Study
  Country: CO (occurrence: CO)
  Receive Date: 20241015
  Receipt Date: 20241016
  Transmission Date: 20250115
  Serious: Yes (Death)
  Sender: RECORDATI
  Company Number: CO-ORPHANEU-2024005457

PATIENT

DRUGS (4)
  1. CARBAGLU [Suspect]
     Active Substance: CARGLUMIC ACID
     Indication: Hyperammonaemia
     Dosage: 400 MILLIGRAM EVERY DAY
     Route: 048
     Dates: start: 20240704, end: 202407
  2. LEVETIRACETAM [Concomitant]
     Active Substance: LEVETIRACETAM
     Indication: Product used for unknown indication
     Dosage: UNK
  3. VIGABATRIN [Concomitant]
     Active Substance: VIGABATRIN
     Indication: Product used for unknown indication
     Dosage: UNK
  4. PHENOBARBITAL [Concomitant]
     Active Substance: PHENOBARBITAL
     Indication: Product used for unknown indication
     Dosage: UNK

REACTIONS (2)
  - Brain death [Fatal]
  - Generalised oedema [Not Recovered/Not Resolved]

NARRATIVE: CASE EVENT DATE: 20240701
